FAERS Safety Report 17789166 (Version 4)
Quarter: 2020Q3

REPORT INFORMATION
  Report Type: Report from Study
  Country: US (occurrence: US)
  Receive Date: 20200514
  Receipt Date: 20200804
  Transmission Date: 20201102
  Serious: Yes (Death, Hospitalization)
  Sender: FDA-Public Use
  Company Number: US-EXELIXIS-CABO-20029760

PATIENT
  Age: 59 Year
  Sex: Male

DRUGS (1)
  1. CABOMETYX [Suspect]
     Active Substance: CABOZANTINIB S-MALATE
     Indication: RENAL CELL CARCINOMA
     Dosage: 40 MG, QD
     Dates: start: 20200416, end: 20200716

REACTIONS (8)
  - Photosensitivity reaction [Unknown]
  - Death [Fatal]
  - Diarrhoea [Recovered/Resolved]
  - Abdominal abscess [Recovering/Resolving]
  - Escherichia infection [Recovered/Resolved]
  - Adverse drug reaction [Unknown]
  - Weight decreased [Unknown]
  - Decreased appetite [Recovered/Resolved]

NARRATIVE: CASE EVENT DATE: 20200730
